FAERS Safety Report 13364147 (Version 3)
Quarter: 2017Q2

REPORT INFORMATION
  Report Type: Spontaneous
  Country: RU (occurrence: RU)
  Receive Date: 20170323
  Receipt Date: 20170405
  Transmission Date: 20170830
  Serious: Yes (Other)
  Sender: FDA-Public Use
  Company Number: RU-JNJFOC-20170317151

PATIENT
  Sex: Female

DRUGS (2)
  1. ORTHO EVRA [Suspect]
     Active Substance: ETHINYL ESTRADIOL\NORELGESTROMIN
     Indication: PRODUCT USED FOR UNKNOWN INDICATION
     Dosage: FOR 6 MONTHS, BUT BATCH THIS GCZTI00 SINCE FEB-2017
     Route: 065
  2. TRANEXAM [Concomitant]
     Active Substance: TRANEXAMIC ACID
     Route: 065
     Dates: start: 20170314

REACTIONS (1)
  - Dermatitis contact [Recovered/Resolved]
